FAERS Safety Report 6176327-2 (Version None)
Quarter: 2009Q2

REPORT INFORMATION
  Report Type: 
  Country: None (occurrence: None)
  Receive Date: 20090501
  Receipt Date: 20090421
  Transmission Date: 20091009
  Serious: Yes (Hospitalization, Other)
  Sender: FDA-Public Use
  Company Number: US-JNJFOC-20090405239

PATIENT
  Sex: Female

DRUGS (5)
  1. REMICADE [Suspect]
     Route: 042
  2. REMICADE [Suspect]
     Indication: CROHN'S DISEASE
     Route: 042
  3. HUMIRA [Suspect]
     Indication: CROHN'S DISEASE
  4. MERCAPTOPURINE [Concomitant]
  5. METHYLPREDNISOLONE 4MG TAB [Concomitant]

REACTIONS (17)
  - ABDOMINAL PAIN [None]
  - ANTIBODY TEST POSITIVE [None]
  - BONE LESION [None]
  - CONVULSION [None]
  - COUGH [None]
  - CROHN'S DISEASE [None]
  - DRUG HYPERSENSITIVITY [None]
  - HEPATIC FAILURE [None]
  - HYPERTENSION [None]
  - INFUSION RELATED REACTION [None]
  - MOBILITY DECREASED [None]
  - MUSCULAR WEAKNESS [None]
  - NASOPHARYNGITIS [None]
  - NECK PAIN [None]
  - RENAL FAILURE [None]
  - REVERSIBLE POSTERIOR LEUKOENCEPHALOPATHY SYNDROME [None]
  - URINARY INCONTINENCE [None]
